FAERS Safety Report 9817512 (Version 3)
Quarter: 2014Q4

REPORT INFORMATION
  Report Type: Spontaneous
  Country: CA (occurrence: CA)
  Receive Date: 20140115
  Receipt Date: 20141003
  Transmission Date: 20150529
  Serious: Yes (Other)
  Sender: FDA-Public Use
  Company Number: CA-BRISTOL-MYERS SQUIBB COMPANY-19964063

PATIENT
  Age: 71 Year
  Sex: Male

DRUGS (5)
  1. DILAUDID [Concomitant]
     Active Substance: HYDROMORPHONE HYDROCHLORIDE
  2. GLEEVEC [Suspect]
     Active Substance: IMATINIB MESYLATE
     Indication: CHRONIC MYELOID LEUKAEMIA
     Dates: start: 2000
  3. LYRICA [Concomitant]
     Active Substance: PREGABALIN
  4. OXYCODONE [Concomitant]
     Active Substance: OXYCODONE
  5. SPRYCEL [Suspect]
     Active Substance: DASATINIB
     Indication: CHRONIC MYELOID LEUKAEMIA
     Route: 048
     Dates: start: 2004

REACTIONS (5)
  - Microcytic anaemia [Unknown]
  - White blood cell count increased [Unknown]
  - Neuropathy peripheral [Unknown]
  - Pneumonia [Unknown]
  - Pyrexia [Unknown]
